FAERS Safety Report 6747726-2 (Version None)
Quarter: 2010Q2

REPORT INFORMATION
  Report Type: 
  Country: None (occurrence: None)
  Receive Date: 20100528
  Receipt Date: 20100517
  Transmission Date: 20101027
  Serious: Yes (Death, Hospitalization)
  Sender: FDA-Public Use
  Company Number: US-SANOFI-AVENTIS-2010SA020799

PATIENT
  Age: 70 Year
  Sex: Female
  Weight: 86 kg

DRUGS (16)
  1. CLOPIDOGREL BISULFATE [Suspect]
     Indication: ACUTE CORONARY SYNDROME
     Route: 048
     Dates: start: 20090623, end: 20100307
  2. CLOPIDOGREL BISULFATE [Suspect]
     Route: 048
     Dates: start: 20100319, end: 20100324
  3. ASPIRIN [Concomitant]
     Dates: start: 20070212
  4. PERINDOPRIL [Concomitant]
     Dates: start: 20090622
  5. AMLODIPINE [Concomitant]
     Dates: start: 20090225
  6. TRIMETAZIDINE [Concomitant]
     Dates: start: 20090623
  7. CANDESARTAN [Concomitant]
     Dates: start: 20090623
  8. CARVEDILOL [Concomitant]
     Dates: start: 20090623
  9. PANTOPRAZOLE [Concomitant]
     Dates: start: 20090623
  10. GLYCERYL TRINITRATE [Concomitant]
     Dates: start: 20090623
  11. INSULIN [Concomitant]
     Dates: start: 19890101
  12. ALDACTONE [Concomitant]
     Dates: start: 20090630
  13. ATORVASTATIN [Concomitant]
     Dates: start: 20090920
  14. RAMIPRIL [Concomitant]
     Dates: start: 20090920
  15. TRAZODONE HCL [Concomitant]
     Dates: start: 20091129
  16. ALPRAZOLAM [Concomitant]
     Dates: start: 20090630

REACTIONS (2)
  - ACUTE MYOCARDIAL INFARCTION [None]
  - ANGINA UNSTABLE [None]
